FAERS Safety Report 19987282 (Version 1)
Quarter: 2021Q4

REPORT INFORMATION
  Report Type: Spontaneous
  Country: JP (occurrence: JP)
  Receive Date: 20211022
  Receipt Date: 20211022
  Transmission Date: 20220303
  Serious: Yes (Hospitalization)
  Sender: FDA-Public Use
  Company Number: JP-PFIZER INC-202101382483

PATIENT
  Age: 10 Decade
  Sex: Female

DRUGS (2)
  1. CELECOXIB [Suspect]
     Active Substance: CELECOXIB
     Dosage: 2 DF(TWO TABLETS)
     Route: 048
  2. TULOBUTEROL [Suspect]
     Active Substance: TULOBUTEROL
     Dosage: 2 MG
     Route: 048

REACTIONS (1)
  - Medication crystals in urine present [Unknown]
